FAERS Safety Report 21651546 (Version 1)
Quarter: 2022Q4

REPORT INFORMATION
  Report Type: Spontaneous
  Country: US (occurrence: None)
  Receive Date: 20221123
  Receipt Date: 20221123
  Transmission Date: 20230113
  Serious: Yes (Death)
  Sender: FDA-Public Use
  Company Number: None

PATIENT
  Sex: Female

DRUGS (1)
  1. OCTREOTIDE [Suspect]
     Active Substance: OCTREOTIDE
     Indication: Gastrointestinal stoma complication
     Dosage: OTHER QUANTITY : 100MCG/ML;?FREQUENCY : AS DIRECTED;?INJECT 100MCG UNDER THE SKIN (SUBCUTANEOUS INJE
     Route: 058
     Dates: start: 20221111

REACTIONS (1)
  - Death [None]
